FAERS Safety Report 5704002-4 (Version None)
Quarter: 2008Q2

REPORT INFORMATION
  Report Type: 
  Country: None (occurrence: None)
  Receive Date: 20080414
  Receipt Date: 20080403
  Transmission Date: 20081010
  Serious: Yes (Death)
  Sender: FDA-Public Use
  Company Number: CA-JNJFOC-20080400995

PATIENT
  Age: 77 Year
  Sex: Female

DRUGS (2)
  1. FENTANYL [Suspect]
     Indication: PAIN
     Route: 062
  2. NITROGLYCERIN [Concomitant]
     Route: 065

REACTIONS (7)
  - CONFUSIONAL STATE [None]
  - DEATH [None]
  - DROOLING [None]
  - DYSPHAGIA [None]
  - HYPERSOMNIA [None]
  - PAIN IN EXTREMITY [None]
  - SOMNOLENCE [None]
